FAERS Safety Report 9131695 (Version 1)
Quarter: 2013Q1

REPORT INFORMATION
  Report Type: Spontaneous
  Country: US (occurrence: US)
  Receive Date: 20130301
  Receipt Date: 20130301
  Transmission Date: 20140127
  Serious: Yes (Other)
  Sender: FDA-Public Use
  Company Number: US-MYLANLABS-2012S1011277

PATIENT
  Sex: Male

DRUGS (2)
  1. SOTRET [Suspect]
     Indication: ACNE
     Route: 048
     Dates: start: 200511, end: 200511
  2. AMNESTEEM CAPSULES [Suspect]
     Indication: ACNE
     Route: 048
     Dates: start: 200512, end: 200512

REACTIONS (1)
  - Inflammatory bowel disease [Not Recovered/Not Resolved]
